FAERS Safety Report 17859676 (Version 1)
Quarter: 2020Q2

REPORT INFORMATION
  Report Type: Report from Study
  Country: CA (occurrence: CA)
  Receive Date: 20200604
  Receipt Date: 20200604
  Transmission Date: 20200714
  Serious: Yes (Hospitalization, Other)
  Sender: FDA-Public Use
  Company Number: CA-JNJFOC-20200533622

PATIENT
  Age: 16 Year
  Sex: Female
  Weight: 49.49 kg

DRUGS (1)
  1. REMICADE [Suspect]
     Active Substance: INFLIXIMAB
     Indication: CROHN^S DISEASE
     Route: 042
     Dates: start: 20110811

REACTIONS (6)
  - Contusion [Unknown]
  - Vomiting [Unknown]
  - Nausea [Unknown]
  - Infusion related reaction [Unknown]
  - Wound [Unknown]
  - Road traffic accident [Unknown]

NARRATIVE: CASE EVENT DATE: 20200522
